FAERS Safety Report 21079648 (Version 1)
Quarter: 2022Q3

REPORT INFORMATION
  Report Type: Other
  Country: US (occurrence: US)
  Receive Date: 20220714
  Receipt Date: 20220714
  Transmission Date: 20221026
  Serious: No
  Sender: FDA-Public Use
  Company Number: US-PRINSTON PHARMACEUTICAL INC.-2022PRN00212

PATIENT
  Age: 37 Year
  Sex: Male
  Weight: 108.84 kg

DRUGS (5)
  1. CLONAZEPAM [Suspect]
     Active Substance: CLONAZEPAM
     Indication: Sleep terror
     Dosage: 2 MG, 2X/DAY
     Route: 048
     Dates: start: 20220510
  2. CLONAZEPAM [Suspect]
     Active Substance: CLONAZEPAM
     Indication: Agoraphobia
  3. MITRAZAPINE [Concomitant]
     Dosage: UNK, 1X/DAY AT BEDTIME
  4. PRAZOSIN [Concomitant]
     Active Substance: PRAZOSIN
     Dosage: UNK, 1X/DAY AT BEDTIME
  5. SEROQUEL [Concomitant]
     Active Substance: QUETIAPINE FUMARATE
     Dosage: UNK, 1X/DAY AT BEDTIME

REACTIONS (12)
  - Sleep terror [Not Recovered/Not Resolved]
  - Nausea [Not Recovered/Not Resolved]
  - Middle insomnia [Not Recovered/Not Resolved]
  - Abnormal sleep-related event [Recovered/Resolved]
  - Limb injury [Recovering/Resolving]
  - Drug ineffective [Not Recovered/Not Resolved]
  - Withdrawal syndrome [Not Recovered/Not Resolved]
  - Dizziness [Not Recovered/Not Resolved]
  - Anxiety [Not Recovered/Not Resolved]
  - Depersonalisation/derealisation disorder [Not Recovered/Not Resolved]
  - Product substitution issue [Not Recovered/Not Resolved]
  - Product quality issue [Not Recovered/Not Resolved]

NARRATIVE: CASE EVENT DATE: 20210510
